FAERS Safety Report 6667573-X (Version None)
Quarter: 2010Q2

REPORT INFORMATION
  Report Type: 
  Country: None (occurrence: None)
  Receive Date: 20100405
  Receipt Date: 20100329
  Transmission Date: 20101027
  Serious: Yes (Death, Hospitalization)
  Sender: FDA-Public Use
  Company Number: US-MERCK-1001USA03389

PATIENT
  Age: 81 Year
  Sex: Female
  Weight: 55 kg

DRUGS (13)
  1. JANUVIA [Suspect]
     Indication: DIABETES MELLITUS
     Route: 048
     Dates: start: 20080201, end: 20080201
  2. JANUVIA [Suspect]
     Route: 048
     Dates: start: 20080305, end: 20080520
  3. JANUVIA [Suspect]
     Route: 048
     Dates: start: 20080602
  4. ASPIRIN [Concomitant]
     Indication: TYPE 2 DIABETES MELLITUS
     Route: 048
  5. METFORMIN [Concomitant]
     Indication: TYPE 2 DIABETES MELLITUS
     Route: 048
     Dates: start: 20080201
  6. GLIPIZIDE [Concomitant]
     Route: 048
  7. GLIPIZIDE [Concomitant]
     Route: 048
  8. JANUMET [Suspect]
     Indication: TYPE 2 DIABETES MELLITUS
     Route: 048
     Dates: start: 20071121, end: 20080201
  9. JANUMET [Suspect]
     Route: 048
     Dates: start: 20080228, end: 20080305
  10. JANUMET [Suspect]
     Route: 048
     Dates: start: 20080602
  11. TAGAMET [Concomitant]
     Route: 065
  12. VASOTEC [Concomitant]
     Route: 048
     Dates: start: 20080501, end: 20080512
  13. VASOTEC [Concomitant]
     Route: 048
     Dates: start: 20080513, end: 20080520

REACTIONS (11)
  - BLOOD GLUCOSE INCREASED [None]
  - CONJUNCTIVITIS ALLERGIC [None]
  - DEATH [None]
  - ESSENTIAL HYPERTENSION [None]
  - OVERDOSE [None]
  - PSORIASIS [None]
  - REFLUX OESOPHAGITIS [None]
  - RHINITIS ALLERGIC [None]
  - SUBDURAL HAEMATOMA [None]
  - TREATMENT NONCOMPLIANCE [None]
  - URINARY TRACT INFECTION [None]
